FAERS Safety Report 5115147-4 (Version None)
Quarter: 2006Q3

REPORT INFORMATION
  Report Type: 
  Country: None (occurrence: None)
  Receive Date: 20060922
  Receipt Date: 20060914
  Transmission Date: 20061208
  Serious: Yes (Other)
  Sender: FDA-Public Use
  Company Number: 2006111095

PATIENT
  Age: 68 Year
  Sex: Female
  Weight: 67.1324 kg

DRUGS (6)
  1. CADUET [Suspect]
     Dosage: 10MG/40MG (1 IN 1D), ORAL
     Route: 048
     Dates: start: 20060818, end: 20060906
  2. ALL OTHER THERAPEUTIC PRODUCTS (ALL OTHER THERAPEUTIC PRODUCTS) [Concomitant]
  3. PREVACID [Concomitant]
  4. VITAMINS (VITAMINS) [Concomitant]
  5. ALL OTHER THERAPEUTIC PRODUCTS (ALL OTHER THERAPEUTIC PRODUCTS) [Concomitant]
  6. LORAZEPAM [Concomitant]

REACTIONS (6)
  - DRUG INEFFECTIVE [None]
  - FEELING ABNORMAL [None]
  - FLUSHING [None]
  - GAIT DISTURBANCE [None]
  - MALAISE [None]
  - OEDEMA PERIPHERAL [None]
